FAERS Safety Report 5957622-6 (Version None)
Quarter: 2008Q4

REPORT INFORMATION
  Report Type: 
  Country: None (occurrence: None)
  Receive Date: 20081119
  Receipt Date: 20081117
  Transmission Date: 20090506
  Serious: Yes (Hospitalization)
  Sender: FDA-Public Use
  Company Number: AU-BRISTOL-MYERS SQUIBB COMPANY-14408686

PATIENT
  Age: 84 Year
  Sex: Female

DRUGS (2)
  1. MITOMYCIN-C POWDER [Suspect]
     Route: 042
  2. INTERFERON ALFA-2B [Suspect]
     Dosage: INTERFERON ALFA-2B EYE DROPS; 1 DOSAGE FORM= 6 (UNITS NOT SPECIFIED).
     Route: 061

REACTIONS (2)
  - DRUG INEFFECTIVE [None]
  - DYSPLASIA [None]
